FAERS Safety Report 4534751-5 (Version None)
Quarter: 2004Q4

REPORT INFORMATION
  Report Type: 
  Country: None (occurrence: None)
  Receive Date: 20041222
  Receipt Date: 20040121
  Transmission Date: 20050328
  Serious: No
  Sender: FDA-Public Use
  Company Number: US-BRISTOL-MYERS SQUIBB COMPANY-12484259

PATIENT
  Age: 60 Year
  Sex: Male
  Weight: 93 kg

DRUGS (11)
  1. PRAVACHOL [Suspect]
     Indication: BLOOD CHOLESTEROL INCREASED
     Route: 048
  2. FUROSEMIDE [Concomitant]
  3. CEPHALEXIN [Concomitant]
  4. ZOLOFT [Concomitant]
  5. COREG [Concomitant]
  6. TRICOR [Concomitant]
  7. DIGOXIN [Concomitant]
  8. LISINOPRIL [Concomitant]
  9. ALLOPURINOL [Concomitant]
  10. AMIODARONE [Concomitant]
  11. PROTONIX [Concomitant]

REACTIONS (1)
  - ABNORMAL DREAMS [None]
